FAERS Safety Report 7999800-0 (Version None)
Quarter: 2011Q4

REPORT INFORMATION
  Report Type: 
  Country: None (occurrence: None)
  Receive Date: 20111222
  Receipt Date: 20111212
  Transmission Date: 20120403
  Serious: Yes (Death)
  Sender: FDA-Public Use
  Company Number: AR-BIOGENIDEC-2011BI039627

PATIENT
  Age: 17 Year
  Sex: Female

DRUGS (1)
  1. AVONEX [Suspect]
     Indication: MULTIPLE SCLEROSIS
     Route: 030
     Dates: start: 20110916, end: 20111001

REACTIONS (7)
  - PNEUMONIA ASPIRATION [None]
  - MULTIPLE SCLEROSIS RELAPSE [None]
  - BRONCHITIS [None]
  - APHASIA [None]
  - PYREXIA [None]
  - CARDIAC ARREST [None]
  - MULTIPLE SCLEROSIS [None]
